FAERS Safety Report 10082281 (Version 1)
Quarter: 2014Q2

REPORT INFORMATION
  Report Type: Spontaneous
  Country: DE (occurrence: DE)
  Receive Date: 20140416
  Receipt Date: 20140416
  Transmission Date: 20141212
  Serious: Yes (Death, Other)
  Sender: FDA-Public Use
  Company Number: DE-ACTAVIS-2014-07215

PATIENT
  Age: 52 Year
  Sex: Female

DRUGS (12)
  1. DOXEPIN (WATSON LABORATORIES) [Suspect]
     Indication: PRODUCT USED FOR UNKNOWN INDICATION
     Dosage: 125 MG, DAILY
     Route: 065
  2. DOXEPIN (WATSON LABORATORIES) [Interacting]
     Dosage: 100 MG, DAILY
     Route: 065
  3. DOXEPIN (WATSON LABORATORIES) [Interacting]
     Dosage: 25 MG, DAILY
     Route: 065
  4. AMLODIPINE (UNKNOWN) [Interacting]
     Indication: PRODUCT USED FOR UNKNOWN INDICATION
     Dosage: 2.5 MG, DAILY
     Route: 065
  5. AMLODIPINE (UNKNOWN) [Interacting]
     Dosage: 7.5 MG, DAILY
     Route: 065
  6. AMLODIPINE (UNKNOWN) [Interacting]
     Dosage: 10 MG, DAILY
     Route: 065
  7. OLANZAPINE (UNKNOWN) [Interacting]
     Indication: PRODUCT USED FOR UNKNOWN INDICATION
     Dosage: UNK
     Route: 065
  8. DIAZEPAM (UNKNOWN) [Interacting]
     Indication: PRODUCT USED FOR UNKNOWN INDICATION
     Dosage: UNK
     Route: 065
  9. METOPROLOL (UNKNOWN) [Interacting]
     Indication: PRODUCT USED FOR UNKNOWN INDICATION
     Dosage: UNK
     Route: 065
  10. IBUPROFEN (UNKNOWN) [Interacting]
     Indication: PRODUCT USED FOR UNKNOWN INDICATION
     Dosage: UNK
     Route: 065
  11. TILIDINE [Interacting]
     Indication: PRODUCT USED FOR UNKNOWN INDICATION
     Dosage: UNK
     Route: 065
  12. PROTHIPENDYL [Interacting]
     Indication: PRODUCT USED FOR UNKNOWN INDICATION
     Dosage: DOSAGE GIVEN IN THE EVENING WAS DOUBLED ON 3 OF THE LAST 5 DAYS BEFORE DEATH
     Route: 065

REACTIONS (8)
  - Toxicity to various agents [Fatal]
  - Drug interaction [Fatal]
  - Gait disturbance [Unknown]
  - Somnolence [Unknown]
  - Drooling [Unknown]
  - Apathy [Unknown]
  - Pain [Unknown]
  - Sleep disorder [Unknown]
